FAERS Safety Report 8067340-9 (Version None)
Quarter: 2012Q1

REPORT INFORMATION
  Report Type: 
  Country: None (occurrence: None)
  Receive Date: 20120124
  Receipt Date: 20120120
  Transmission Date: 20120608
  Serious: Yes (Other)
  Sender: FDA-Public Use
  Company Number: FR-GLAXOSMITHKLINE-B0776855A

PATIENT
  Sex: Female

DRUGS (3)
  1. RHINOCORT [Concomitant]
     Indication: ASTHMA
  2. FLUTICASONE PROPIONATE/SALMETEROL [Suspect]
     Indication: ASTHMA
     Route: 055
  3. BRONCHODUAL [Concomitant]
     Indication: ASTHMA

REACTIONS (4)
  - MALAISE [None]
  - DEVICE FAILURE [None]
  - PRODUCT QUALITY ISSUE [None]
  - DRUG INEFFECTIVE [None]
